FAERS Safety Report 8415721-3 (Version None)
Quarter: 2012Q2

REPORT INFORMATION
  Report Type: 
  Country: None (occurrence: None)
  Receive Date: 20120606
  Receipt Date: 20120529
  Transmission Date: 20120825
  Serious: Yes (Hospitalization)
  Sender: FDA-Public Use
  Company Number: CA-JNJFOC-20120520769

PATIENT
  Sex: Female

DRUGS (1)
  1. SIMPONI [Suspect]
     Indication: RHEUMATOID ARTHRITIS
     Route: 058
     Dates: start: 20110801, end: 20120102

REACTIONS (4)
  - LOWER RESPIRATORY TRACT INFECTION [None]
  - PAIN [None]
  - LOSS OF CONSCIOUSNESS [None]
  - COMPLEX REGIONAL PAIN SYNDROME [None]
